FAERS Safety Report 12431784 (Version 1)
Quarter: 2016Q2

REPORT INFORMATION
  Report Type: Spontaneous
  Country: US (occurrence: US)
  Receive Date: 20160603
  Receipt Date: 20160603
  Transmission Date: 20160815
  Serious: No
  Sender: FDA-Public Use
  Company Number: US-SUN PHARMACEUTICAL INDUSTRIES LTD-2015SUN02000

PATIENT
  Age: 63 Year
  Sex: Female

DRUGS (2)
  1. TECHNETIUM TC-99M SULFUR COLLOID KIT [Suspect]
     Active Substance: TECHNETIUM TC-99M SULFUR COLLOID
     Indication: LYMPHATIC MAPPING
     Dosage: 1 MCI, OD
     Route: 058
     Dates: start: 20150910, end: 20150910
  2. LIDOCAINE. [Suspect]
     Active Substance: LIDOCAINE
     Indication: PAIN PROPHYLAXIS
     Dosage: 1 ML, OD
     Route: 058
     Dates: start: 20150910, end: 20150910

REACTIONS (3)
  - Erythema [Unknown]
  - Urticaria [Unknown]
  - Rash macular [Unknown]

NARRATIVE: CASE EVENT DATE: 20150910
